FAERS Safety Report 22000518 (Version 1)
Quarter: 2023Q1

REPORT INFORMATION
  Report Type: Spontaneous
  Country: JP (occurrence: JP)
  Receive Date: 20230216
  Receipt Date: 20230216
  Transmission Date: 20230418
  Serious: Yes (Hospitalization)
  Sender: FDA-Public Use
  Company Number: JP-Teva Takeda Yakuhin-2023-JP-000390J

PATIENT
  Age: 45 Year
  Sex: Female
  Weight: 58 kg

DRUGS (20)
  1. LANSOPRAZOLE [Suspect]
     Active Substance: LANSOPRAZOLE
     Indication: Product used for unknown indication
     Dosage: 30 MILLIGRAM, QD
     Route: 048
  2. ZYPREXA [Concomitant]
     Active Substance: OLANZAPINE
     Dosage: DOSAGE IS UNKNOWN
     Route: 048
  3. ZOLPIDEM TARTRATE [Concomitant]
     Active Substance: ZOLPIDEM TARTRATE
     Dosage: DOSAGE IS UNKNOWN
     Route: 048
  4. FEXOFENADINE HYDROCHLORIDE [Concomitant]
     Active Substance: FEXOFENADINE HYDROCHLORIDE
     Dosage: DOSAGE IS UNKNOWN
     Route: 048
  5. METHYLCOBALAMIN [Concomitant]
     Active Substance: METHYLCOBALAMIN
     Dosage: DOSAGE IS UNKNOWN
     Route: 048
  6. FLUVOXAMINE [Concomitant]
     Active Substance: FLUVOXAMINE
     Dosage: DOSAGE IS UNKNOWN
     Route: 048
  7. ZOPICLONE [Concomitant]
     Active Substance: ZOPICLONE
     Dosage: DOSAGE IS UNKNOWN
     Route: 048
  8. DOMPERIDONE [Concomitant]
     Active Substance: DOMPERIDONE
     Dosage: DOSAGE IS UNKNOWN
     Route: 048
  9. CLORAZEPATE DIPOTASSIUM [Concomitant]
     Active Substance: CLORAZEPATE DIPOTASSIUM
     Dosage: DOSAGE IS UNKNOWN
     Route: 065
  10. AMITIZA [Concomitant]
     Active Substance: LUBIPROSTONE
     Dosage: DOSAGE IS UNKNOWN
     Route: 065
  11. OXETHAZAINE [Concomitant]
     Active Substance: OXETHAZAINE
     Dosage: DOSAGE IS UNKNOWN
     Route: 065
  12. MAGNESIUM OXIDE [Concomitant]
     Active Substance: MAGNESIUM OXIDE
     Dosage: DOSAGE IS UNKNOWN
     Route: 065
  13. PANTETHINE [Concomitant]
     Active Substance: PANTETHINE
     Dosage: DOSAGE IS UNKNOWN
     Route: 048
  14. TRIMEBUTINE [Concomitant]
     Active Substance: TRIMEBUTINE
     Dosage: DOSAGE IS UNKNOWN
     Route: 048
  15. LOXOPROFEN [Concomitant]
     Active Substance: LOXOPROFEN
     Dosage: DOSAGE IS UNKNOWN
     Route: 048
  16. SENNOSIDES [Concomitant]
     Active Substance: SENNOSIDES
     Dosage: DOSAGE IS UNKNOWN
     Route: 065
  17. LAMICTAL [Concomitant]
     Active Substance: LAMOTRIGINE
     Dosage: DOSAGE IS UNKNOWN
     Route: 065
  18. TEGRETOL [Concomitant]
     Active Substance: CARBAMAZEPINE
     Dosage: DOSAGE IS UNKNOWN
     Route: 065
  19. REBAMIPIDE [Concomitant]
     Active Substance: REBAMIPIDE
     Dosage: DOSAGE IS UNKNOWN
     Route: 065
  20. GLYCOSAMINOGLYCANS [Concomitant]
     Active Substance: GLYCOSAMINOGLYCANS
     Dosage: DOSAGE IS UNKNOWN
     Route: 062

REACTIONS (5)
  - Hospitalisation [Unknown]
  - Iron deficiency [Recovered/Resolved]
  - Folate deficiency [Recovered/Resolved]
  - White blood cell count decreased [Unknown]
  - Iron deficiency anaemia [Recovered/Resolved]

NARRATIVE: CASE EVENT DATE: 20221101
